FAERS Safety Report 12308558 (Version 1)
Quarter: 2016Q2

REPORT INFORMATION
  Report Type: Spontaneous
  Country: US (occurrence: US)
  Receive Date: 20160427
  Receipt Date: 20160427
  Transmission Date: 20160815
  Serious: No
  Sender: FDA-Public Use
  Company Number: US-ASTRAZENECA-2016SE29780

PATIENT
  Age: 738 Month
  Sex: Female
  Weight: 83 kg

DRUGS (6)
  1. APIDRA [Concomitant]
     Active Substance: INSULIN GLULISINE
  2. LOSARTAN. [Concomitant]
     Active Substance: LOSARTAN
     Indication: HYPERTENSION
     Route: 048
  3. LANTUS [Concomitant]
     Active Substance: INSULIN GLARGINE
  4. CRESTOR [Suspect]
     Active Substance: ROSUVASTATIN CALCIUM
     Indication: BLOOD CHOLESTEROL INCREASED
     Route: 048
  5. WELCHOL [Concomitant]
     Active Substance: COLESEVELAM HYDROCHLORIDE
     Route: 048
  6. FARXIGA [Suspect]
     Active Substance: DAPAGLIFLOZIN PROPANEDIOL
     Indication: TYPE 2 DIABETES MELLITUS
     Route: 048
     Dates: start: 201509, end: 201603

REACTIONS (5)
  - Blood glucose increased [Unknown]
  - Urinary tract infection [Unknown]
  - Fungal infection [Unknown]
  - Renal disorder [Unknown]
  - Furuncle [Unknown]

NARRATIVE: CASE EVENT DATE: 201602
